FAERS Safety Report 10418569 (Version 1)
Quarter: 2014Q3

REPORT INFORMATION
  Report Type: Spontaneous
  Country: CA (occurrence: CA)
  Receive Date: 20140829
  Receipt Date: 20140829
  Transmission Date: 20150326
  Serious: Yes (Other)
  Sender: FDA-Public Use
  Company Number: CA-AMGEN-CANSP2014065078

PATIENT
  Age: 60 Year
  Sex: Female

DRUGS (3)
  1. NAPROXEN                           /00256202/ [Concomitant]
     Active Substance: NAPROXEN SODIUM
     Dosage: UNK UNK, AS NECESSARY
  2. TYLENOL [Concomitant]
     Active Substance: ACETAMINOPHEN
     Dosage: UNK
  3. PROLIA [Suspect]
     Active Substance: DENOSUMAB
     Indication: OSTEOPOROSIS POSTMENOPAUSAL
     Dosage: 60 MG, Q6MO
     Route: 058
     Dates: start: 20140703

REACTIONS (7)
  - Muscle spasms [Unknown]
  - Herpes zoster [Recovering/Resolving]
  - Aphthous stomatitis [Unknown]
  - Nephrolithiasis [Unknown]
  - Alopecia [Unknown]
  - Muscle twitching [Unknown]
  - Intervertebral disc protrusion [Unknown]

NARRATIVE: CASE EVENT DATE: 20140822
